FAERS Safety Report 8337725-1 (Version None)
Quarter: 2012Q1

REPORT INFORMATION
  Report Type: 
  Country: None (occurrence: None)
  Receive Date: 20120329
  Receipt Date: 20100730
  Transmission Date: 20120608
  Serious: Yes (Other)
  Sender: FDA-Public Use
  Company Number: PHHY2010US51315

PATIENT
  Age: 74 Year
  Sex: Female

DRUGS (7)
  1. LISINOPRIL [Concomitant]
  2. EXELON [Suspect]
     Dosage: 9.5 MG, UNK, TRANSDERMAL
     Route: 062
  3. TEMAZEPAM [Concomitant]
  4. GABAPENTIN [Suspect]
  5. PROPOXYPHENE HYDROCHLORIDE [Concomitant]
  6. LEVOTHYROXINE SODIUM [Concomitant]
  7. SIMVASTATIN [Concomitant]

REACTIONS (4)
  - CATARACT [None]
  - DIZZINESS [None]
  - CATARACT OPERATION [None]
  - VISUAL IMPAIRMENT [None]
